FAERS Safety Report 6632162-X (Version None)
Quarter: 2010Q1

REPORT INFORMATION
  Report Type: 
  Country: None (occurrence: None)
  Receive Date: 20100312
  Receipt Date: 20100308
  Transmission Date: 20100710
  Serious: Yes (Other)
  Sender: FDA-Public Use
  Company Number: DE-SANOFI-AVENTIS-2010SA004582

PATIENT
  Age: 69 Year
  Sex: Male
  Weight: 73 kg

DRUGS (9)
  1. MULTAQ [Suspect]
     Indication: ATRIAL FIBRILLATION
     Route: 048
     Dates: start: 20100112, end: 20100219
  2. SOTALEX [Concomitant]
     Indication: ATRIAL FIBRILLATION
     Route: 048
     Dates: start: 20070101
  3. CARMEN [Concomitant]
     Indication: HYPERTENSION
     Route: 048
     Dates: start: 20000101
  4. ACETYLSALICYLIC ACID [Concomitant]
     Route: 048
     Dates: start: 20070501
  5. DIGITOXIN INJ [Concomitant]
     Route: 048
     Dates: start: 20070801
  6. ESCITALOPRAM [Concomitant]
     Indication: ANXIETY
     Route: 048
     Dates: start: 20070801
  7. CLOPIDOGREL [Concomitant]
     Route: 048
     Dates: start: 20070501
  8. TORSEMIDE [Concomitant]
     Route: 048
     Dates: start: 20070801
  9. TORSEMIDE [Concomitant]
     Route: 048
     Dates: start: 20100117

REACTIONS (7)
  - ATRIAL FIBRILLATION [None]
  - DRUG INTERACTION [None]
  - EPISTAXIS [None]
  - EXTRASYSTOLES [None]
  - OEDEMA PERIPHERAL [None]
  - SINUSITIS [None]
  - SWELLING FACE [None]
